FAERS Safety Report 18575387 (Version 2)
Quarter: 2020Q4

REPORT INFORMATION
  Report Type: Spontaneous
  Country: US (occurrence: US)
  Receive Date: 20201203
  Receipt Date: 20201209
  Transmission Date: 20210114
  Serious: Yes (Other)
  Sender: FDA-Public Use
  Company Number: US-PFIZER INC-2020475260

PATIENT
  Age: 48 Year
  Sex: Male
  Weight: 92.99 kg

DRUGS (2)
  1. CHANTIX [Suspect]
     Active Substance: VARENICLINE TARTRATE
     Dosage: 1 MG, 2X/DAY
     Route: 048
  2. CHANTIX [Suspect]
     Active Substance: VARENICLINE TARTRATE
     Indication: SMOKING CESSATION THERAPY
     Dosage: UNK UNK, 2X/DAY   (UNSURE OF DOSE, ONCE IN AM AND AT NIGHT AS PRESCRIBED)
     Dates: start: 2019, end: 2020

REACTIONS (8)
  - Migraine [Not Recovered/Not Resolved]
  - Memory impairment [Unknown]
  - Intervertebral disc protrusion [Unknown]
  - Loss of personal independence in daily activities [Unknown]
  - Head injury [Unknown]
  - Post-traumatic stress disorder [Not Recovered/Not Resolved]
  - Spinal compression fracture [Unknown]
  - Loss of consciousness [Unknown]

NARRATIVE: CASE EVENT DATE: 20190809
